FAERS Safety Report 21915497 (Version 1)
Quarter: 2023Q1

REPORT INFORMATION
  Report Type: Report from Study
  Country: BR (occurrence: BR)
  Receive Date: 20230126
  Receipt Date: 20230126
  Transmission Date: 20230418
  Serious: Yes (Death, Hospitalization, Other)
  Sender: FDA-Public Use
  Company Number: BR-002147023-NVSC2022BR250554

PATIENT
  Age: 45 Year
  Sex: Female

DRUGS (2)
  1. KISQALI [Suspect]
     Active Substance: RIBOCICLIB
     Indication: Product used for unknown indication
     Dosage: UNK
     Route: 065
     Dates: start: 20221017
  2. KISQALI [Suspect]
     Active Substance: RIBOCICLIB
     Dosage: 3 UNK (FOR 21 DAYS)
     Route: 065
     Dates: start: 20221017

REACTIONS (10)
  - Death [Fatal]
  - Platelet count decreased [Unknown]
  - Pneumonia [Unknown]
  - Wound [Unknown]
  - Wound complication [Unknown]
  - Illness [Unknown]
  - Malaise [Unknown]
  - Speech disorder [Unknown]
  - Asthenia [Unknown]
  - Constipation [Unknown]

NARRATIVE: CASE EVENT DATE: 20221119
